FAERS Safety Report 4325748-9 (Version None)
Quarter: 2004Q1

REPORT INFORMATION
  Report Type: 
  Country: None (occurrence: None)
  Receive Date: 20040324
  Receipt Date: 20040311
  Transmission Date: 20041129
  Serious: Yes (Other)
  Sender: FDA-Public Use
  Company Number: USA040361208

PATIENT
  Age: 52 Year
  Sex: Female

DRUGS (4)
  1. XIGRIS [Suspect]
     Indication: SEPSIS
     Dates: start: 20040308
  2. VANCOMYCIN [Concomitant]
  3. LEVOFLOXACIN [Concomitant]
  4. LOVENOX [Concomitant]

REACTIONS (1)
  - MEDICATION ERROR [None]
